FAERS Safety Report 20584165 (Version 3)
Quarter: 2022Q2

REPORT INFORMATION
  Report Type: Spontaneous
  Country: US (occurrence: US)
  Receive Date: 20220311
  Receipt Date: 20220408
  Transmission Date: 20220721
  Serious: No
  Sender: FDA-Public Use
  Company Number: US-TRIS PHARMA, INC.-22US010102

PATIENT

DRUGS (2)
  1. DYANAVEL XR [Suspect]
     Active Substance: AMPHETAMINE
     Indication: Attention deficit hyperactivity disorder
     Dosage: 2 MILLILITRE, QD
     Route: 048
     Dates: start: 20211230, end: 20220129
  2. DYANAVEL XR [Suspect]
     Active Substance: AMPHETAMINE
     Dosage: 4 MILLILITRE, QD
     Route: 048
     Dates: start: 20211223, end: 20211229

REACTIONS (4)
  - Vasoconstriction [Recovered/Resolved]
  - Skin discolouration [Recovered/Resolved]
  - Pain in extremity [Recovered/Resolved]
  - Off label use [Unknown]

NARRATIVE: CASE EVENT DATE: 20211223
